FAERS Safety Report 7717388-6 (Version None)
Quarter: 2011Q3

REPORT INFORMATION
  Report Type: 
  Country: None (occurrence: None)
  Receive Date: 20110823
  Receipt Date: 20110630
  Transmission Date: 20111222
  Serious: Yes (Hospitalization)
  Sender: FDA-Public Use
  Company Number: 20110630CINRY2095

PATIENT
  Age: 31 Year
  Sex: Female

DRUGS (2)
  1. CINRYZE (C1 ESTERASE INHIBITOR (HUMAN)) (500 IU (INTERNATIONAL UNIT), [Suspect]
     Indication: HEREDITARY ANGIOEDEMA
     Dosage: (1000 IU, 2 IN 1 WK), INTRAVENOUS
     Route: 042
  2. CINRYZE (C1 ESTERASE INHIBITOR (HUMAN)) (500 IU (INTERNATIONAL UNIT), [Suspect]
     Indication: PROPHYLAXIS
     Dosage: (1000 IU, 2 IN 1 WK), INTRAVENOUS
     Route: 042

REACTIONS (3)
  - HEREDITARY ANGIOEDEMA [None]
  - ASTHMA [None]
  - CONSTIPATION [None]
